FAERS Safety Report 6012858-3 (Version None)
Quarter: 2008Q4

REPORT INFORMATION
  Report Type: 
  Country: None (occurrence: None)
  Receive Date: 20081217
  Receipt Date: 20081203
  Transmission Date: 20090506
  Serious: Yes (Hospitalization, Other)
  Sender: FDA-Public Use
  Company Number: 2008SU0293

PATIENT
  Age: 81 Year
  Sex: Male
  Weight: 89.8122 kg

DRUGS (7)
  1. SULAR [Suspect]
     Indication: HYPERTENSION
     Dosage: 20MG, TWICE DAILY, PO
     Route: 048
     Dates: start: 20050101, end: 20081118
  2. SULAR [Suspect]
     Indication: HYPERTENSION
     Dosage: 17MG, TWICE DAILY, PO
     Route: 048
     Dates: end: 20081119
  3. MICARDIS [Concomitant]
  4. CRESTOR [Concomitant]
  5. COUMADIN [Concomitant]
  6. ATENOLOL [Concomitant]
  7. TEKTURNA [Concomitant]

REACTIONS (4)
  - ATRIAL FIBRILLATION [None]
  - BLOOD PRESSURE INADEQUATELY CONTROLLED [None]
  - BLOOD PRESSURE SYSTOLIC INCREASED [None]
  - DRUG INEFFECTIVE [None]
